FAERS Safety Report 4742515-2 (Version None)
Quarter: 2005Q3

REPORT INFORMATION
  Report Type: 
  Country: None (occurrence: None)
  Receive Date: 20050808
  Receipt Date: 20050721
  Transmission Date: 20060218
  Serious: Yes (Hospitalization)
  Sender: FDA-Public Use
  Company Number: USA0507103439

PATIENT
  Age: 78 Year
  Sex: Male

DRUGS (2)
  1. ALIMTA [Suspect]
     Indication: NON-SMALL CELL LUNG CANCER
     Dosage: 500 MG/M2
     Dates: start: 20050701
  2. VITAMINS NOS [Concomitant]

REACTIONS (2)
  - FULL BLOOD COUNT DECREASED [None]
  - PLEURAL EFFUSION [None]
